FAERS Safety Report 21811398 (Version 2)
Quarter: 2023Q1

REPORT INFORMATION
  Report Type: Spontaneous
  Country: IT (occurrence: IT)
  Receive Date: 20230103
  Receipt Date: 20230104
  Transmission Date: 20230417
  Serious: Yes (Other)
  Sender: FDA-Public Use
  Company Number: IT-MLMSERVICE-20221223-3993999-1

PATIENT
  Age: 56 Year
  Sex: Male

DRUGS (3)
  1. VINCRISTINE SULFATE [Suspect]
     Active Substance: VINCRISTINE SULFATE
     Indication: Lymphoma
     Dosage: UNK
     Route: 042
  2. EPIRUBICIN HYDROCHLORIDE [Suspect]
     Active Substance: EPIRUBICIN HYDROCHLORIDE
     Indication: Lymphoma
     Route: 042
  3. CYCLOPHOSPHAMIDE [Suspect]
     Active Substance: CYCLOPHOSPHAMIDE
     Indication: Lymphoma
     Route: 042

REACTIONS (10)
  - Drug monitoring procedure incorrectly performed [Recovered/Resolved]
  - Injection site pain [Unknown]
  - Injection site swelling [Unknown]
  - Injection site necrosis [Recovered/Resolved with Sequelae]
  - Injection site ulcer [Recovered/Resolved with Sequelae]
  - Injection site scar [Unknown]
  - Injection site joint movement impairment [Unknown]
  - Injection site extravasation [Recovered/Resolved with Sequelae]
  - Injection site oedema [Unknown]
  - Injection site erythema [Unknown]
